FAERS Safety Report 5559381-8 (Version None)
Quarter: 2007Q4

REPORT INFORMATION
  Report Type: 
  Country: None (occurrence: None)
  Receive Date: 20071214
  Receipt Date: 20071002
  Transmission Date: 20080405
  Serious: No
  Sender: FDA-Public Use
  Company Number: US-ABBOTT-07P-163-0419177-00

PATIENT
  Sex: Female
  Weight: 125 kg

DRUGS (4)
  1. HUMIRA [Suspect]
     Indication: PSORIATIC ARTHROPATHY
     Route: 058
     Dates: start: 20070401, end: 20071001
  2. HUMIRA [Suspect]
     Dates: start: 20071001
  3. MELOXICAM [Concomitant]
     Indication: ARTHRALGIA
     Route: 048
     Dates: start: 20070701
  4. VALSARTAN [Concomitant]
     Indication: HYPERTENSION
     Route: 048

REACTIONS (5)
  - ARTHRALGIA [None]
  - INJECTION SITE ERYTHEMA [None]
  - INJECTION SITE PRURITUS [None]
  - INJECTION SITE REACTION [None]
  - THERAPEUTIC RESPONSE DECREASED [None]
